FAERS Safety Report 9352446 (Version 2)
Quarter: 2013Q4

REPORT INFORMATION
  Report Type: Spontaneous
  Country: GB (occurrence: GB)
  Receive Date: 20130617
  Receipt Date: 20131108
  Transmission Date: 20140711
  Serious: Yes (Disabling)
  Sender: FDA-Public Use
  Company Number: GB-BAXTER-2013BAX021376

PATIENT
  Age: 55 Year
  Sex: Male

DRUGS (14)
  1. CYCLOPHOSPHAMIDE TABLETS 50 MG [Suspect]
     Indication: PLASMA CELL MYELOMA
     Route: 048
     Dates: start: 20130128, end: 20130514
  2. THALIDOMIDE CELGENE [Suspect]
     Indication: PLASMA CELL MYELOMA
     Route: 048
     Dates: start: 20130128, end: 20130219
  3. THALIDOMIDE CELGENE [Suspect]
     Route: 048
     Dates: end: 20130514
  4. ALLOPURINOL [Concomitant]
     Indication: TUMOUR LYSIS SYNDROME
     Route: 048
     Dates: start: 20130128, end: 20130312
  5. AMLOSTIN [Concomitant]
     Indication: ESSENTIAL HYPERTENSION
     Route: 048
  6. BENDROFLUMETHIAZIDE [Concomitant]
     Indication: ESSENTIAL HYPERTENSION
     Route: 048
  7. DEXAMETHASONE [Concomitant]
     Indication: PLASMA CELL MYELOMA
     Route: 048
     Dates: end: 20130514
  8. DOMPERIDONE [Concomitant]
     Indication: NAUSEA
     Route: 048
     Dates: start: 20130128
  9. DOXADURA [Concomitant]
     Indication: ESSENTIAL HYPERTENSION
     Route: 048
  10. FRAGMIN [Concomitant]
     Indication: THROMBOSIS PROPHYLAXIS
     Route: 058
  11. OMEPRAZOLE [Concomitant]
     Indication: PROPHYLAXIS AGAINST GASTROINTESTINAL ULCER
     Route: 048
     Dates: start: 20130128
  12. ORAMORPH [Concomitant]
     Indication: PRODUCT USED FOR UNKNOWN INDICATION
     Route: 048
  13. SIMVADOR [Concomitant]
     Indication: ESSENTIAL HYPERTENSION
     Route: 048
  14. SODIUM CLODRONATE [Concomitant]
     Indication: PLASMA CELL MYELOMA
     Route: 048
     Dates: start: 20130128

REACTIONS (2)
  - Interstitial lung disease [Not Recovered/Not Resolved]
  - Splenomegaly [Unknown]
